FAERS Safety Report 9486480 (Version 2)
Quarter: 2013Q3

REPORT INFORMATION
  Report Type: Spontaneous
  Country: ES (occurrence: ES)
  Receive Date: 20130829
  Receipt Date: 20130902
  Transmission Date: 20140515
  Serious: Yes (Other)
  Sender: FDA-Public Use
  Company Number: ES-AMGEN-ESPSP2013060332

PATIENT
  Age: 68 Year
  Sex: Female

DRUGS (3)
  1. PROLIA [Suspect]
     Indication: PRODUCT USED FOR UNKNOWN INDICATION
     Dosage: UNK
     Route: 065
  2. HIDROFEROL [Concomitant]
     Indication: OSTEOPOROSIS
  3. CALCIUM + VITAMIN D                /01483701/ [Concomitant]
     Indication: OSTEOPOROSIS

REACTIONS (21)
  - Cellulitis [Recovered/Resolved]
  - Back pain [Recovering/Resolving]
  - Myalgia [Recovered/Resolved]
  - Musculoskeletal stiffness [Recovering/Resolving]
  - Muscle spasms [Recovering/Resolving]
  - Paraesthesia [Recovering/Resolving]
  - Paraesthesia oral [Recovering/Resolving]
  - Pyrexia [Recovered/Resolved]
  - Fatigue [Recovering/Resolving]
  - Pollakiuria [Recovering/Resolving]
  - Pain in jaw [Recovering/Resolving]
  - Hypoaesthesia [Not Recovered/Not Resolved]
  - Nausea [Recovering/Resolving]
  - Arthropathy [Recovering/Resolving]
  - Dry skin [Recovering/Resolving]
  - Blister [Recovering/Resolving]
  - Hypersensitivity [Recovered/Resolved]
  - Bone pain [Recovered/Resolved]
  - Urticaria [Recovering/Resolving]
  - Erythema [Recovering/Resolving]
  - Pain in extremity [Recovering/Resolving]
